FAERS Safety Report 8569069 (Version 4)
Quarter: 2012Q4

REPORT INFORMATION
  Report Type: Report from Study
  Country: IL (occurrence: IL)
  Receive Date: 20120518
  Receipt Date: 20120918
  Transmission Date: 20130627
  Serious: Yes (Death, Life-Threatening, Hospitalization, Disabling, Other)
  Sender: FDA-Public Use
  Company Number: IL-INCYTE CORPORATION-2012IN000826

PATIENT
  Age: 67 Year
  Sex: Male
  Weight: 65 kg

DRUGS (5)
  1. INC424 [Suspect]
     Indication: MYELOFIBROSIS
     Dosage: 15 mg, bid
     Route: 048
     Dates: start: 20120504
  2. INC424 [Suspect]
     Indication: SPLENOMEGALY
     Dosage: 10 mg, bid
     Route: 048
     Dates: end: 20120712
  3. ZYLOL [Concomitant]
     Dosage: UNK
     Dates: end: 20120505
  4. OMEPRADEX [Concomitant]
     Dosage: UNK
     Dates: start: 20120502, end: 20120702
  5. ALLOPURINOL [Concomitant]

REACTIONS (5)
  - Haemorrhage subcutaneous [Fatal]
  - Septic shock [Fatal]
  - Spontaneous haematoma [Recovered/Resolved]
  - Acinetobacter bacteraemia [Fatal]
  - Acute respiratory distress syndrome [Fatal]
